FAERS Safety Report 9694503 (Version 1)
Quarter: 2013Q4

REPORT INFORMATION
  Report Type: Spontaneous
  Country: US (occurrence: US)
  Receive Date: 20131118
  Receipt Date: 20131118
  Transmission Date: 20140711
  Serious: No
  Sender: FDA-Public Use
  Company Number: US-SA-2013SA114275

PATIENT
  Age: 15 Year
  Sex: Female

DRUGS (1)
  1. SKLICE [Suspect]
     Indication: LICE INFESTATION
     Dosage: DOSE:4 OUNCE
     Route: 003

REACTIONS (1)
  - Drug ineffective [Unknown]
